FAERS Safety Report 16192941 (Version 1)
Quarter: 2019Q2

REPORT INFORMATION
  Report Type: Spontaneous
  Country: PL (occurrence: PL)
  Receive Date: 20190413
  Receipt Date: 20190413
  Transmission Date: 20190711
  Serious: Yes (Other)
  Sender: FDA-Public Use
  Company Number: PL-ROCHE-2301390

PATIENT
  Age: 57 Year
  Sex: Male

DRUGS (2)
  1. RIBAVIRIN. [Suspect]
     Active Substance: RIBAVIRIN
     Indication: HEPATITIS C
     Dosage: ON 20/JUL/2017, HE RECEIVED MOST RECENT DOSE OF RIBAVIRIN.
     Route: 048
     Dates: start: 20170216
  2. SOVALDI [Suspect]
     Active Substance: SOFOSBUVIR
     Indication: HEPATITIS C
     Dosage: ON 20/JUL/2017, HE RECEIVED MOST RECENT DOSE OF SOVALDI
     Route: 048
     Dates: start: 20170216

REACTIONS (1)
  - Treatment failure [Unknown]
